FAERS Safety Report 16500317 (Version 1)
Quarter: 2019Q3

REPORT INFORMATION
  Report Type: Report from Study
  Country: FR (occurrence: FR)
  Receive Date: 20190701
  Receipt Date: 20190701
  Transmission Date: 20191004
  Serious: Yes (Other)
  Sender: FDA-Public Use
  Company Number: FR-ROCHE-2341830

PATIENT

DRUGS (3)
  1. LENALIDOMIDE [Suspect]
     Active Substance: LENALIDOMIDE
     Dosage: ON DAYS 1 TO 21 OF A 28 DAYS CYCLE FOR CYCLES 2 TO 8
     Route: 048
  2. RITUXIMAB. [Suspect]
     Active Substance: RITUXIMAB
     Indication: CENTRAL NERVOUS SYSTEM LYMPHOMA
     Route: 042
  3. LENALIDOMIDE [Suspect]
     Active Substance: LENALIDOMIDE
     Indication: CENTRAL NERVOUS SYSTEM LYMPHOMA
     Dosage: DAYS 1 TO 21 DAYS OF A 28 DAYS CYCLE FOR THE FIRST CYCLE
     Route: 048

REACTIONS (18)
  - Anaemia [Unknown]
  - Asthenia [Unknown]
  - Paraesthesia [Unknown]
  - Hypertension [Unknown]
  - Headache [Unknown]
  - Rash [Unknown]
  - Injury [Unknown]
  - Orchitis [Unknown]
  - Hyponatraemia [Unknown]
  - Clostridium difficile colitis [Unknown]
  - Neutropenia [Unknown]
  - Febrile neutropenia [Unknown]
  - Pneumonitis [Unknown]
  - Lymphopenia [Unknown]
  - Thrombocytopenia [Unknown]
  - Gamma-glutamyltransferase increased [Unknown]
  - Infection [Unknown]
  - Hyperglycaemia [Unknown]
